FAERS Safety Report 11845635 (Version 3)
Quarter: 2016Q1

REPORT INFORMATION
  Report Type: Spontaneous
  Country: US (occurrence: US)
  Receive Date: 20151217
  Receipt Date: 20160225
  Transmission Date: 20160526
  Serious: No
  Sender: FDA-Public Use
  Company Number: US-PFIZER INC-2015449440

PATIENT
  Age: 54 Year
  Sex: Female

DRUGS (4)
  1. VENLAFAXINE HCL [Suspect]
     Active Substance: VENLAFAXINE HYDROCHLORIDE
     Indication: ANXIETY
     Dosage: 150 MG, 2X/DAY
  2. VENLAFAXINE HCL [Suspect]
     Active Substance: VENLAFAXINE HYDROCHLORIDE
     Indication: ANGER
  3. VENLAFAXINE HCL [Suspect]
     Active Substance: VENLAFAXINE HYDROCHLORIDE
     Indication: DEPRESSION
  4. ESCITALOPRAM [Concomitant]
     Active Substance: ESCITALOPRAM OXALATE
     Dosage: 10 MG, 1X/DAY
     Dates: start: 20150622, end: 20150919

REACTIONS (7)
  - Drug ineffective [Not Recovered/Not Resolved]
  - Crying [Unknown]
  - Feeling jittery [Unknown]
  - Disturbance in attention [Unknown]
  - Activities of daily living impaired [Unknown]
  - Nervousness [Unknown]
  - Anger [Unknown]

NARRATIVE: CASE EVENT DATE: 2015
